FAERS Safety Report 6664090-8 (Version None)
Quarter: 2010Q2

REPORT INFORMATION
  Report Type: 
  Country: None (occurrence: None)
  Receive Date: 20100401
  Receipt Date: 20100329
  Transmission Date: 20101027
  Serious: Yes (Hospitalization)
  Sender: FDA-Public Use
  Company Number: A0852792A

PATIENT
  Age: 67 Year
  Sex: Male
  Weight: 92 kg

DRUGS (12)
  1. MELPHALAN HYDROCHLORIDE [Suspect]
     Indication: AMYLOIDOSIS
     Dosage: 20MG CYCLIC
     Route: 048
     Dates: start: 20100210, end: 20100313
  2. BORTEZOMIB [Suspect]
     Indication: AMYLOIDOSIS
     Dosage: 2.8MG CYCLIC
     Route: 042
     Dates: start: 20100210, end: 20100310
  3. DEXAMETHASONE [Suspect]
     Indication: AMYLOIDOSIS
     Dosage: 40MG CYCLIC
     Route: 048
     Dates: start: 20100210, end: 20100311
  4. ACETAMINOPHEN [Concomitant]
  5. ASPIRIN [Concomitant]
  6. CITALOPRAM HYDROBROMIDE [Concomitant]
  7. OXYCODONE [Concomitant]
  8. ACYCLOVIR [Concomitant]
  9. SENOKOT [Concomitant]
  10. OMEPRAZOLE [Concomitant]
  11. METOPROLOL [Concomitant]
  12. ZOFRAN [Concomitant]

REACTIONS (9)
  - ABDOMINAL DISTENSION [None]
  - ABDOMINAL PAIN [None]
  - AGITATION [None]
  - CLONUS [None]
  - CONSTIPATION [None]
  - MEMORY IMPAIRMENT [None]
  - MENTAL STATUS CHANGES [None]
  - PSYCHOTIC DISORDER [None]
  - TREMOR [None]
